FAERS Safety Report 22145385 (Version 2)
Quarter: 2023Q2

REPORT INFORMATION
  Report Type: Report from Study
  Country: US (occurrence: US)
  Receive Date: 20230328
  Receipt Date: 20230417
  Transmission Date: 20230722
  Serious: Yes (Other)
  Sender: FDA-Public Use
  Company Number: US-ABBVIE-4705774

PATIENT
  Age: 64 Year
  Sex: Female
  Weight: 84 kg

DRUGS (3)
  1. HUMIRA [Suspect]
     Active Substance: ADALIMUMAB
     Indication: Crohn^s disease
     Dosage: HUMIRA 40MG/0.4ML
     Route: 058
     Dates: start: 20120101
  2. ABILIFY [Concomitant]
     Active Substance: ARIPIPRAZOLE
     Indication: Depression
  3. CYMBALTA [Concomitant]
     Active Substance: DULOXETINE HYDROCHLORIDE
     Indication: Depression

REACTIONS (5)
  - Osteoporosis [Recovering/Resolving]
  - Bone density decreased [Not Recovered/Not Resolved]
  - Device physical property issue [Recovering/Resolving]
  - Bone loss [Recovering/Resolving]
  - Bone graft [Unknown]

NARRATIVE: CASE EVENT DATE: 20230201
